FAERS Safety Report 22090493 (Version 1)
Quarter: 2023Q1

REPORT INFORMATION
  Report Type: Spontaneous
  Country: FR (occurrence: FR)
  Receive Date: 20230313
  Receipt Date: 20230313
  Transmission Date: 20230418
  Serious: Yes (Other)
  Sender: FDA-Public Use
  Company Number: FR-002147023-NVSC2023FR048004

PATIENT

DRUGS (2)
  1. RUXOLITINIB [Suspect]
     Active Substance: RUXOLITINIB
     Indication: Chronic myelomonocytic leukaemia
     Dosage: UNK
     Route: 065
  2. COBIMETINIB [Suspect]
     Active Substance: COBIMETINIB
     Indication: Chronic myelomonocytic leukaemia
     Dosage: UNK
     Route: 065

REACTIONS (3)
  - Therapy partial responder [Unknown]
  - Malignant neoplasm progression [Unknown]
  - Chronic myelomonocytic leukaemia [Unknown]
